FAERS Safety Report 4550542-3 (Version None)
Quarter: 2004Q4

REPORT INFORMATION
  Report Type: 
  Country: None (occurrence: None)
  Receive Date: 20041227
  Receipt Date: 20041124
  Transmission Date: 20050328
  Serious: No
  Sender: FDA-Public Use
  Company Number: 04P-163-0281332-00

PATIENT
  Age: 39 Year
  Sex: Female
  Weight: 54.4316 kg

DRUGS (8)
  1. HUMIRA [Suspect]
     Indication: ANKYLOSING SPONDYLITIS
     Dosage: 40 MG 1 IN 2 WK SUBCUTANEOUS
     Route: 058
     Dates: start: 20041121
  2. MELOXICAM [Concomitant]
  3. ASACHOL [Concomitant]
  4. ESOMEPRAZOLE [Concomitant]
  5. CLONAZEPAM [Concomitant]
  6. OXYCONTIN [Concomitant]
  7. GABAPENTIN [Concomitant]
  8. ZONISAMIDE [Concomitant]

REACTIONS (2)
  - INJECTION SITE PAIN [None]
  - RESPIRATORY TRACT INFECTION [None]
